FAERS Safety Report 9218194 (Version 2)
Quarter: 2013Q4

REPORT INFORMATION
  Report Type: Spontaneous
  Country: GB (occurrence: GB)
  Receive Date: 20130408
  Receipt Date: 20131008
  Transmission Date: 20140711
  Serious: Yes (Hospitalization, Other)
  Sender: FDA-Public Use
  Company Number: PHHY2013US032176

PATIENT
  Age: 77 Year
  Sex: Male

DRUGS (6)
  1. TAMSULOSIN [Suspect]
     Indication: PROSTATOMEGALY
     Dosage: 400 UG, QD
     Route: 065
  2. VERAPAMIL [Interacting]
     Indication: ATRIAL FIBRILLATION
     Dosage: 80 MG, TID
  3. WARFARIN [Interacting]
     Indication: ATRIAL FIBRILLATION
  4. LEVOTHYROXINE [Interacting]
     Indication: HYPOTHYROIDISM
     Dosage: 150 UG, QD
     Route: 065
  5. CLENIL MODULITE [Interacting]
     Indication: ASTHMA
     Dosage: 200 UG, BID
     Route: 055
     Dates: start: 20130219
  6. OCUVITE                            /01053801/ [Concomitant]

REACTIONS (5)
  - Cerebrovascular accident [Unknown]
  - International normalised ratio decreased [Unknown]
  - Haemorrhage [Unknown]
  - Therapeutic response unexpected [Unknown]
  - Drug interaction [Unknown]
